FAERS Safety Report 20997918 (Version 1)
Quarter: 2022Q2

REPORT INFORMATION
  Report Type: Spontaneous
  Country: US (occurrence: US)
  Receive Date: 20220623
  Receipt Date: 20220623
  Transmission Date: 20220721
  Serious: Yes (Other)
  Sender: FDA-Public Use
  Company Number: US-MYLANLABS-2022M1047225

PATIENT
  Age: 21 Month
  Sex: Female

DRUGS (3)
  1. PREDNISONE [Suspect]
     Active Substance: PREDNISONE
     Indication: Rosai-Dorfman syndrome
     Dosage: 1 MILLIGRAM/KILOGRAM, QD, SCHEDULED TO RECEIVE TREATMENT FOR 6 MONTHS
     Route: 065
  2. MERCAPTOPURINE [Suspect]
     Active Substance: MERCAPTOPURINE
     Indication: Rosai-Dorfman syndrome
     Dosage: 50 MILLIGRAM/SQ. METER, QD
     Route: 048
  3. METHOTREXATE [Suspect]
     Active Substance: METHOTREXATE
     Indication: Rosai-Dorfman syndrome
     Dosage: 20 MILLIGRAM/SQ. METER, QW
     Route: 048

REACTIONS (3)
  - Drug ineffective for unapproved indication [Unknown]
  - Behaviour disorder [Unknown]
  - Off label use [Unknown]
